FAERS Safety Report 9679095 (Version 1)
Quarter: 2013Q4

REPORT INFORMATION
  Report Type: Spontaneous
  Country: CA (occurrence: CA)
  Receive Date: 20131108
  Receipt Date: 20131108
  Transmission Date: 20140711
  Serious: Yes (Other)
  Sender: FDA-Public Use
  Company Number: CA-ALLERGAN-1317546US

PATIENT
  Age: 47 Year
  Sex: Female

DRUGS (7)
  1. BOTOX COSMETIC [Suspect]
     Indication: SKIN WRINKLING
     Dosage: UNK, SINGLE
     Route: 030
     Dates: start: 20130705, end: 20130705
  2. BOTOX COSMETIC [Suspect]
     Indication: SKIN WRINKLING
  3. JUVEDERM [Suspect]
     Indication: SKIN WRINKLING
     Dosage: UNK, SINGLE
     Route: 023
  4. JUVEDERM [Suspect]
     Indication: SKIN WRINKLING
  5. JUVEDERM [Suspect]
     Indication: SKIN WRINKLING
  6. JUVEDERM [Suspect]
     Indication: SKIN WRINKLING
  7. THYROXINE [Concomitant]
     Indication: PRIMARY HYPOTHYROIDISM

REACTIONS (6)
  - Injection site nodule [Unknown]
  - Lip swelling [Unknown]
  - Tenderness [Unknown]
  - Injection site inflammation [Unknown]
  - Road traffic accident [Unknown]
  - Off label use [Unknown]
